FAERS Safety Report 5381300-8 (Version None)
Quarter: 2007Q2

REPORT INFORMATION
  Report Type: 
  Country: None (occurrence: None)
  Receive Date: 20070629
  Receipt Date: 20061127
  Transmission Date: 20071010
  Serious: Yes (Hospitalization, Other)
  Sender: FDA-Public Use
  Company Number: US200611004998

PATIENT
  Age: 72 Year
  Sex: Female

DRUGS (11)
  1. HUMALOG [Suspect]
     Indication: DIABETES MELLITUS NON-INSULIN-DEPENDENT
     Dates: start: 20060401, end: 20061118
  2. HUMALOG MIX 25L/75NPL PEN (HUMALOG MIX 25L/75NPL PEN) PEN, DISPOSABLE [Concomitant]
  3. VICODIN [Concomitant]
  4. SENOKOT [Concomitant]
  5. BUPROPION HCL [Concomitant]
  6. BENTYL [Concomitant]
  7. LASIX (FUROSEMIDE, FUROSEMIDE SODIUM) [Concomitant]
  8. ASPIRIN [Concomitant]
  9. NEXIUM [Concomitant]
  10. LEVOXYL [Concomitant]
  11. MIRALAX [Concomitant]

REACTIONS (6)
  - ABDOMINAL PAIN UPPER [None]
  - DYSPNOEA [None]
  - INSOMNIA [None]
  - INTESTINAL FUNCTIONAL DISORDER [None]
  - MYOCARDIAL INFARCTION [None]
  - PULMONARY OEDEMA [None]
